FAERS Safety Report 4941029-4 (Version None)
Quarter: 2006Q1

REPORT INFORMATION
  Report Type: 
  Country: None (occurrence: None)
  Receive Date: 20060313
  Receipt Date: 20041122
  Transmission Date: 20060701
  Serious: Yes (Death)
  Sender: FDA-Public Use
  Company Number: 2004GB02813

PATIENT
  Age: 80 Year
  Sex: Female
  Weight: 73 kg

DRUGS (8)
  1. CRESTOR [Suspect]
     Indication: BLOOD CHOLESTEROL INCREASED
     Route: 048
     Dates: start: 20040920
  2. CRESTOR [Suspect]
     Indication: MYOCARDIAL ISCHAEMIA
     Route: 048
     Dates: start: 20040920
  3. ASPIRIN [Concomitant]
     Indication: MYOCARDIAL ISCHAEMIA
     Route: 048
     Dates: start: 20020628
  4. BENDROFLUAZIDE [Concomitant]
     Route: 048
     Dates: start: 20040123
  5. ADIZEM-XL [Concomitant]
     Route: 048
     Dates: start: 20030512
  6. NICORANDIL [Concomitant]
     Route: 048
     Dates: start: 20030611
  7. GTN-S [Concomitant]
     Route: 048
     Dates: start: 20030611
  8. DOXAZOSIN [Concomitant]
     Route: 048

REACTIONS (4)
  - AORTIC VALVE STENOSIS [None]
  - ARTERIOSCLEROSIS [None]
  - ARTERIOSCLEROSIS CORONARY ARTERY [None]
  - FALL [None]
